FAERS Safety Report 12036971 (Version 1)
Quarter: 2016Q1

REPORT INFORMATION
  Report Type: Spontaneous
  Country: US (occurrence: None)
  Receive Date: 20160204
  Receipt Date: 20160204
  Transmission Date: 20160526
  Serious: Yes (Other)
  Sender: FDA-Public Use
  Company Number: None

PATIENT
  Age: 50 Year
  Sex: Male
  Weight: 117.94 kg

DRUGS (10)
  1. FLONASE [Suspect]
     Active Substance: FLUTICASONE PROPIONATE
     Indication: SINUS CONGESTION
     Dosage: 200 MCG/DAY AS NEEDED INTRANASAL
     Dates: start: 20111031, end: 20141031
  2. VERAMYST [Suspect]
     Active Substance: FLUTICASONE FUROATE
     Indication: PULMONARY CONGESTION
     Dosage: 110 MCG/DAY, AS NEEDED INTRANASAL
  3. FLONASE [Suspect]
     Active Substance: FLUTICASONE PROPIONATE
     Indication: DYSPNOEA
     Dosage: 200 MCG/DAY AS NEEDED INTRANASAL
     Dates: start: 20111031, end: 20141031
  4. FLONASE [Suspect]
     Active Substance: FLUTICASONE PROPIONATE
     Indication: PULMONARY CONGESTION
     Dosage: 200 MCG/DAY AS NEEDED INTRANASAL
     Dates: start: 20111031, end: 20141031
  5. CALCIUM CARBONATE WITH VITAMIN D3 [Concomitant]
  6. ASPIRIN. [Concomitant]
     Active Substance: ASPIRIN
  7. VERAMYST [Suspect]
     Active Substance: FLUTICASONE FUROATE
     Indication: DYSPNOEA
     Dosage: 110 MCG/DAY, AS NEEDED INTRANASAL
  8. MULTIVITAMIN [Concomitant]
     Active Substance: VITAMINS
  9. VERAMYST [Suspect]
     Active Substance: FLUTICASONE FUROATE
     Indication: SINUS CONGESTION
     Dosage: 110 MCG/DAY, AS NEEDED INTRANASAL
  10. METHYLCELLULOSE [Concomitant]
     Active Substance: METHYLCELLULOSES

REACTIONS (1)
  - Cataract [None]

NARRATIVE: CASE EVENT DATE: 20160105
